FAERS Safety Report 6826256-3 (Version None)
Quarter: 2010Q3

REPORT INFORMATION
  Report Type: 
  Country: None (occurrence: None)
  Receive Date: 20100709
  Receipt Date: 20100628
  Transmission Date: 20110219
  Serious: Yes (Hospitalization)
  Sender: FDA-Public Use
  Company Number: PHHY2010US41918

PATIENT
  Sex: Female
  Weight: 38.549 kg

DRUGS (4)
  1. EXJADE [Suspect]
     Indication: IRON OVERLOAD
     Dosage: 1000 MG DAILY
     Route: 048
     Dates: start: 20090716
  2. VITAMIN B-12 [Concomitant]
  3. MULTI-VITAMINS [Concomitant]
  4. THYROID TAB [Suspect]

REACTIONS (3)
  - FALL [None]
  - HIP FRACTURE [None]
  - TREATMENT NONCOMPLIANCE [None]
